FAERS Safety Report 10083371 (Version 1)
Quarter: 2014Q2

REPORT INFORMATION
  Report Type: Spontaneous
  Country: US (occurrence: None)
  Receive Date: 20140416
  Receipt Date: 20140416
  Transmission Date: 20141212
  Serious: Yes (Other)
  Sender: FDA-Public Use
  Company Number: None

PATIENT
  Age: 59 Year
  Sex: Female

DRUGS (2)
  1. CLONAZEPAM [Suspect]
     Indication: MAJOR DEPRESSION
  2. CLONAZEPAM [Suspect]
     Indication: ANXIETY

REACTIONS (4)
  - Anxiety [None]
  - Suicidal ideation [None]
  - Drug ineffective [None]
  - Product substitution issue [None]
